FAERS Safety Report 12417937 (Version 3)
Quarter: 2017Q1

REPORT INFORMATION
  Report Type: Spontaneous
  Country: JP (occurrence: JP)
  Receive Date: 20160531
  Receipt Date: 20170307
  Transmission Date: 20170428
  Serious: Yes (Other)
  Sender: FDA-Public Use
  Company Number: JP-ROCHE-1766061

PATIENT
  Age: 88 Year
  Sex: Male

DRUGS (6)
  1. LUCENTIS [Suspect]
     Active Substance: RANIBIZUMAB
     Dosage: UNK DATE, 6TH DOSE OF LUCENTIS?11/DEC/2015, 7TH DOSE OF LUCENTIS?UNK DATE, 8TH AND 9TH DOSE OF LUCEN
     Route: 031
     Dates: start: 20150817
  2. LUCENTIS [Suspect]
     Active Substance: RANIBIZUMAB
     Dosage: UNK, SECOND DOSE OF LUCENTIS
     Route: 031
     Dates: start: 20150223
  3. LUCENTIS [Suspect]
     Active Substance: RANIBIZUMAB
     Indication: RETINAL VEIN OCCLUSION
     Dosage: UNK, FIRST DOSE OF LUCENTIS
     Route: 031
     Dates: start: 20141218
  4. BAYASPIRIN [Concomitant]
     Active Substance: ASPIRIN
     Indication: PRODUCT USED FOR UNKNOWN INDICATION
     Dosage: UNK
     Route: 065
  5. LUCENTIS [Suspect]
     Active Substance: RANIBIZUMAB
     Dosage: UNK, THIRD DOSE OF LUCENTIS
     Route: 031
     Dates: start: 20150420
  6. LUCENTIS [Suspect]
     Active Substance: RANIBIZUMAB
     Dosage: UNK, FOURTH DOSE OF LUCENTIS
     Route: 031
     Dates: start: 20150617

REACTIONS (4)
  - Visual acuity reduced [Recovering/Resolving]
  - Metamorphopsia [Unknown]
  - Vision blurred [Unknown]
  - Macular oedema [Unknown]

NARRATIVE: CASE EVENT DATE: 20141219
